FAERS Safety Report 14474279 (Version 2)
Quarter: 2018Q1

REPORT INFORMATION
  Report Type: Spontaneous
  Country: JP (occurrence: JP)
  Receive Date: 20180201
  Receipt Date: 20180213
  Transmission Date: 20180509
  Serious: Yes (Other)
  Sender: FDA-Public Use
  Company Number: JP-BAYER-2018-020697

PATIENT
  Age: 88 Year
  Sex: Male
  Weight: 60 kg

DRUGS (10)
  1. MORPHINE [Concomitant]
     Active Substance: MORPHINE
     Indication: FLANK PAIN
     Dosage: DAILY DOSE 10 MG
  2. SELOKEN [Concomitant]
     Active Substance: METOPROLOL
     Dosage: DAILY DOSE 40 MG
     Route: 048
  3. NOVORAPID [Concomitant]
     Active Substance: INSULIN ASPART
     Dosage: UNK UNK, BID
  4. MORPHINE [Concomitant]
     Active Substance: MORPHINE
     Indication: FLANK PAIN
     Dosage: DAILY DOSE 5 MG
  5. CINAL [ASCORBIC ACID,CALCIUM PANTOTHENATE] [Concomitant]
     Dosage: DAILY DOSE 3 G
     Route: 048
  6. GASTROM [Concomitant]
     Active Substance: ECABET SODIUM
     Dosage: DAILY DOSE 3 G
     Route: 048
  7. MEVALOTIN [Concomitant]
     Active Substance: PRAVASTATIN SODIUM
     Dosage: DAILY DOSE 5 MG
     Route: 048
  8. BAYASPIRIN 100 MG [Suspect]
     Active Substance: ASPIRIN
     Dosage: DAILY DOSE 100 MG
     Route: 048
  9. SIGMART [Concomitant]
     Active Substance: NICORANDIL
     Dosage: DAILY DOSE 20 MG
     Route: 048
  10. NORVASC [Concomitant]
     Active Substance: AMLODIPINE BESYLATE
     Dosage: DAILY DOSE 2.5 MG
     Route: 048

REACTIONS (2)
  - Gastric ulcer [Unknown]
  - Gastrointestinal haemorrhage [Unknown]
